FAERS Safety Report 13583417 (Version 2)
Quarter: 2017Q2

REPORT INFORMATION
  Report Type: Spontaneous
  Country: US (occurrence: US)
  Receive Date: 20170526
  Receipt Date: 20170531
  Transmission Date: 20170830
  Serious: Yes (Other)
  Sender: FDA-Public Use
  Company Number: US-CELGENEUS-USA-20170507924

PATIENT
  Age: 62 Year
  Sex: Female

DRUGS (6)
  1. INHALER [Concomitant]
     Active Substance: UNSPECIFIED INGREDIENT
     Indication: ASTHMA
     Route: 065
  2. PREDNISONE. [Suspect]
     Active Substance: PREDNISONE
     Indication: PRODUCT USED FOR UNKNOWN INDICATION
     Route: 065
  3. HUMIRA [Suspect]
     Active Substance: ADALIMUMAB
     Indication: PSORIASIS
     Dosage: 40 MG/0.8 ML
     Route: 058
     Dates: start: 2016
  4. HUMIRA [Suspect]
     Active Substance: ADALIMUMAB
     Indication: RHEUMATOID ARTHRITIS
  5. OTEZLA [Suspect]
     Active Substance: APREMILAST
     Indication: PRODUCT USED FOR UNKNOWN INDICATION
     Route: 048
     Dates: start: 2015, end: 2016
  6. HUMIRA [Suspect]
     Active Substance: ADALIMUMAB
     Indication: PSORIATIC ARTHROPATHY
     Dosage: 40 MG/0.8 ML
     Route: 058
     Dates: end: 2015

REACTIONS (10)
  - Incorrect dose administered [Unknown]
  - Fatigue [Not Recovered/Not Resolved]
  - Wrong technique in product usage process [Unknown]
  - Wrong technique in product usage process [Unknown]
  - Condition aggravated [Recovering/Resolving]
  - Asthma [Recovered/Resolved]
  - Incorrect dose administered [Unknown]
  - Injection site pain [Recovered/Resolved]
  - Injection site pain [Recovered/Resolved]
  - Asthma [Recovered/Resolved]

NARRATIVE: CASE EVENT DATE: 2016
